FAERS Safety Report 11893553 (Version 3)
Quarter: 2016Q1

REPORT INFORMATION
  Report Type: Spontaneous
  Country: US (occurrence: US)
  Receive Date: 20160106
  Receipt Date: 20160223
  Transmission Date: 20160526
  Serious: Yes (Hospitalization, Other)
  Sender: FDA-Public Use
  Company Number: US-PFIZER INC-2015467522

PATIENT
  Age: 54 Year
  Sex: Female
  Weight: 70 kg

DRUGS (9)
  1. HYDROCODONE [Concomitant]
     Active Substance: HYDROCODONE
     Indication: HAEMORRHOIDS
     Dosage: UNK, 4X/DAY (5-325 ONE EVERY SIX HOUR)
     Dates: start: 20151222
  2. MAGNESIUM [Concomitant]
     Active Substance: MAGNESIUM
     Dosage: 250 MG, 3X/DAY
  3. PREPARATION H MEDICATED WIPES [Concomitant]
     Active Substance: WITCH HAZEL
     Dosage: UNK
  4. PREPARATION H NOS [Suspect]
     Active Substance: COCOA BUTTER\PETROLATUM\PHENYLEPHRINE HYDROCHLORIDE\PHENYLEPHRINE HYDROCHLORIDE OR MINERAL OIL
     Indication: HAEMORRHOIDS
     Dosage: UNK, 3X/DAY
     Dates: start: 2007
  5. CLEARLAX [Suspect]
     Active Substance: POLYETHYLENE GLYCOL 3350
     Indication: FAECES HARD
     Dosage: UNK, 1X/DAY
     Dates: start: 2011
  6. MAGNESIUM [Concomitant]
     Active Substance: MAGNESIUM
     Indication: FAECES HARD
     Dosage: 100 OR 150MG DOSE AT BEDTIME, 1X/DAY
     Dates: start: 2012
  7. HYDROCODONE [Concomitant]
     Active Substance: HYDROCODONE
     Indication: NECK PAIN
  8. HYDROCODONE [Concomitant]
     Active Substance: HYDROCODONE
     Indication: ARTHRALGIA
  9. FISH OIL [Concomitant]
     Active Substance: FISH OIL
     Indication: INADEQUATE LUBRICATION
     Dosage: 2000 MG, 3X/DAY
     Dates: start: 2010

REACTIONS (11)
  - Haemorrhoids [Not Recovered/Not Resolved]
  - Mass [Not Recovered/Not Resolved]
  - Diarrhoea [Not Recovered/Not Resolved]
  - Anal fissure [Recovered/Resolved]
  - Arthralgia [Not Recovered/Not Resolved]
  - Condition aggravated [Not Recovered/Not Resolved]
  - Rectal fissure [Not Recovered/Not Resolved]
  - Rectal haemorrhage [Not Recovered/Not Resolved]
  - Neck pain [Not Recovered/Not Resolved]
  - Carpal tunnel syndrome [Unknown]
  - Product closure issue [Not Recovered/Not Resolved]

NARRATIVE: CASE EVENT DATE: 2009
